FAERS Safety Report 23970650 (Version 1)
Quarter: 2024Q2

REPORT INFORMATION
  Report Type: Spontaneous
  Country: CN (occurrence: CN)
  Receive Date: 20240613
  Receipt Date: 20240613
  Transmission Date: 20240716
  Serious: Yes (Other)
  Sender: FDA-Public Use
  Company Number: None

PATIENT
  Age: 6 Year
  Sex: Male
  Weight: 17.5 kg

DRUGS (5)
  1. CYCLOPHOSPHAMIDE [Suspect]
     Active Substance: CYCLOPHOSPHAMIDE
     Indication: Acute lymphocytic leukaemia
     Dosage: 0.7 G, ONE TIME IN ONE DAY, ST, DILUTED WITH (4:1) GLUCOSE SODIUM CHLORIDE (250 ML), D1
     Route: 041
     Dates: start: 20240314, end: 20240314
  2. DEXTROSE\SODIUM CHLORIDE [Suspect]
     Active Substance: DEXTROSE\SODIUM CHLORIDE
     Indication: Medication dilution
     Dosage: 250 ML (4:1), ONE TIME IN ONE DAY, ST, USED TO DILUTE CYCLOPHOPHAMIDE (0.7 G), D1
     Route: 041
     Dates: start: 20240314, end: 20240314
  3. SODIUM CHLORIDE [Suspect]
     Active Substance: SODIUM CHLORIDE
     Indication: Medication dilution
     Dosage: 100 ML, Q12H, USED TO DILUTE CYTARABINE (0.7 G), STRENGTH: 0.9%, D1-3
     Route: 041
     Dates: start: 20240314, end: 20240316
  4. MERCAPTOPURINE [Suspect]
     Active Substance: MERCAPTOPURINE
     Indication: Acute lymphocytic leukaemia
     Dosage: 35 MG, QN, D1-7
     Route: 048
     Dates: start: 20240314, end: 20240320
  5. CYTARABINE [Suspect]
     Active Substance: CYTARABINE
     Indication: Acute lymphocytic leukaemia
     Dosage: 0.7 G, Q12H, DILUTED WITH 0.9% SODIUM CHLORIDE (100 ML), D1-3
     Route: 041
     Dates: start: 20240314, end: 20240316

REACTIONS (1)
  - Myelosuppression [Recovering/Resolving]

NARRATIVE: CASE EVENT DATE: 20240319
